FAERS Safety Report 7758460-4 (Version None)
Quarter: 2011Q3

REPORT INFORMATION
  Report Type: 
  Country: None (occurrence: None)
  Receive Date: 20110919
  Receipt Date: 20110914
  Transmission Date: 20111222
  Serious: No
  Sender: FDA-Public Use
  Company Number: US-PFIZER INC-2011168785

PATIENT
  Sex: Female
  Weight: 77.098 kg

DRUGS (4)
  1. ADVIL PM [Suspect]
     Indication: OSTEOARTHRITIS
  2. ADVIL PM [Suspect]
     Indication: PAIN
  3. CYMBALTA [Concomitant]
     Indication: FIBROMYALGIA
     Dosage: 20 MG, 1XDAY
     Dates: start: 20100101
  4. ADVIL PM [Suspect]
     Indication: SLEEP DISORDER
     Dosage: AS NEEDED
     Route: 048
     Dates: start: 20110101

REACTIONS (2)
  - HANGOVER [None]
  - DRUG INTOLERANCE [None]
